FAERS Safety Report 8897389 (Version 1)
Quarter: 2012Q4

REPORT INFORMATION
  Report Type: Spontaneous
  Country: US (occurrence: None)
  Receive Date: 20121108
  Receipt Date: 20121108
  Transmission Date: 20130627
  Serious: Yes (Life-Threatening, Hospitalization)
  Sender: FDA-Public Use
  Company Number: None

PATIENT
  Age: 87 Year
  Sex: Female
  Weight: 56.24 kg

DRUGS (10)
  1. METHOTREXATE [Suspect]
     Indication: RHEUMATOID ARTHRITIS
     Dosage: 5mg daily po
     Route: 048
     Dates: start: 20120518, end: 20120607
  2. SYNTHROID [Concomitant]
  3. K-TAB [Concomitant]
  4. FOLIC ACID [Concomitant]
  5. FISH OIL [Concomitant]
  6. ZITHROMAX [Concomitant]
  7. MULTIVITAMIN [Concomitant]
  8. ULTRAM [Concomitant]
  9. VITAMIN D [Concomitant]
  10. CEPACOL [Concomitant]

REACTIONS (3)
  - Deep vein thrombosis [None]
  - Mouth haemorrhage [None]
  - Post procedural haemorrhage [None]
